FAERS Safety Report 10577464 (Version 2)
Quarter: 2014Q4

REPORT INFORMATION
  Report Type: Spontaneous
  Country: US (occurrence: US)
  Receive Date: 20141111
  Receipt Date: 20141201
  Transmission Date: 20150529
  Serious: Yes (Hospitalization, Other)
  Sender: FDA-Public Use
  Company Number: US-GILEAD-2014-0121952

PATIENT
  Age: 80 Year
  Sex: Male

DRUGS (2)
  1. ADCIRCA [Concomitant]
     Active Substance: TADALAFIL
  2. LETAIRIS [Suspect]
     Active Substance: AMBRISENTAN
     Indication: PRODUCT USED FOR UNKNOWN INDICATION
     Dosage: 5 MG, QD
     Route: 065
     Dates: start: 20140714

REACTIONS (11)
  - Biopsy bladder [Unknown]
  - Cystoscopy [Unknown]
  - Renal cyst excision [Unknown]
  - Cystitis radiation [Unknown]
  - Biopsy lymph gland [Unknown]
  - Neoplasm malignant [Unknown]
  - Unevaluable event [Unknown]
  - Tumour haemorrhage [Unknown]
  - Surgery [Unknown]
  - Prostate cancer [Unknown]
  - Urostomy [Unknown]
